FAERS Safety Report 15822408 (Version 1)
Quarter: 2019Q1

REPORT INFORMATION
  Report Type: Spontaneous
  Country: US (occurrence: US)
  Receive Date: 20190114
  Receipt Date: 20190114
  Transmission Date: 20190417
  Serious: Yes (Hospitalization)
  Sender: FDA-Public Use
  Company Number: None

PATIENT
  Age: 21 Year
  Sex: Female
  Weight: 58 kg

DRUGS (1)
  1. BACTRIM DS [Suspect]
     Active Substance: SULFAMETHOXAZOLE\TRIMETHOPRIM
     Indication: UPPER RESPIRATORY TRACT INFECTION
     Route: 048
     Dates: start: 20190104, end: 20190111

REACTIONS (2)
  - Pyrexia [None]
  - Jaundice [None]

NARRATIVE: CASE EVENT DATE: 20190112
